FAERS Safety Report 8887425 (Version 1)
Quarter: 2012Q4

REPORT INFORMATION
  Report Type: Spontaneous
  Country: US (occurrence: None)
  Receive Date: 20121101
  Receipt Date: 20121101
  Transmission Date: 20130627
  Serious: Yes (Hospitalization)
  Sender: FDA-Public Use
  Company Number: None

PATIENT
  Age: 72 Year
  Sex: Male
  Weight: 180 kg

DRUGS (15)
  1. PLAVIX [Suspect]
     Route: 048
  2. ASA [Suspect]
     Route: 048
  3. ALBUTEROL [Concomitant]
  4. LOVASTATIN [Concomitant]
  5. LISINOPRIL [Concomitant]
  6. VIT D [Concomitant]
  7. TOPOMAX [Concomitant]
  8. DALIRESF [Concomitant]
  9. PRILOSEC [Concomitant]
  10. METOPROLOL [Concomitant]
  11. SEPTRA DS [Concomitant]
  12. CYMBALTA [Concomitant]
  13. VICODINE [Concomitant]
  14. SPIRIVA [Concomitant]
  15. SYMBICORT [Concomitant]

REACTIONS (3)
  - Haematochezia [None]
  - Anaemia [None]
  - Hyperkalaemia [None]
